FAERS Safety Report 7629763 (Version 2)
Quarter: 2025Q3

REPORT INFORMATION
  Report Type: Spontaneous
  Country: CA (occurrence: CA)
  Receive Date: 20101014
  Receipt Date: 20250904
  Transmission Date: 20251021
  Serious: Yes (Other)
  Sender: MERCK SHARP & DOHME LLC
  Company Number: CA-MERCK-1010USA00611

PATIENT
  Age: 52 Year
  Sex: Male

DRUGS (8)
  1. ISENTRESS [Suspect]
     Active Substance: RALTEGRAVIR POTASSIUM
     Route: 048
  2. ABACAVIR SULFATE [Suspect]
     Active Substance: ABACAVIR SULFATE
     Route: 065
  3. DIDANOSINE [Suspect]
     Active Substance: DIDANOSINE
     Route: 065
  4. INTELENCE [Suspect]
     Active Substance: ETRAVIRINE
     Route: 048
  5. LAMIVUDINE [Suspect]
     Active Substance: LAMIVUDINE
     Route: 065
  6. PREZISTA [Suspect]
     Active Substance: DARUNAVIR ETHANOLATE
     Route: 048
  7. RITONAVIR [Suspect]
     Active Substance: RITONAVIR
     Route: 065
  8. STAVUDINE [Suspect]
     Active Substance: STAVUDINE
     Route: 065

REACTIONS (1)
  - Progressive external ophthalmoplegia [Unknown]
